FAERS Safety Report 4546899-X (Version None)
Quarter: 2005Q1

REPORT INFORMATION
  Report Type: 
  Country: None (occurrence: None)
  Receive Date: 20050105
  Receipt Date: 20041214
  Transmission Date: 20050727
  Serious: Yes (Other)
  Sender: FDA-Public Use
  Company Number: EWC040238032

PATIENT
  Age: 31 Year
  Sex: Male
  Weight: 97 kg

DRUGS (2)
  1. OLANZAPINE-ORAL (OLANZAPINE) [Suspect]
     Indication: SCHIZOPHRENIA
     Dosage: 20 MG/IN THE EVENING
     Dates: start: 20031001, end: 20040216
  2. RISPERIDONE [Concomitant]

REACTIONS (2)
  - ATRIOVENTRICULAR BLOCK FIRST DEGREE [None]
  - BLOOD PRESSURE INCREASED [None]
